FAERS Safety Report 7022120-8 (Version None)
Quarter: 2010Q3

REPORT INFORMATION
  Report Type: 
  Country: None (occurrence: None)
  Receive Date: 20100930
  Receipt Date: 20100920
  Transmission Date: 20110219
  Serious: Yes (Life-Threatening, Hospitalization, Other)
  Sender: FDA-Public Use
  Company Number: CZ-BAXTER-2010BH022244

PATIENT
  Age: 31 Year
  Sex: Male
  Weight: 81 kg

DRUGS (5)
  1. GAMMAGARD LIQUID [Suspect]
     Indication: IMMUNODEFICIENCY COMMON VARIABLE
     Dosage: 30G EACH 4 WEEKS/1 VIAL IS 10G
     Route: 042
     Dates: start: 20100825, end: 20100825
  2. GAMMAGARD LIQUID [Suspect]
     Indication: PRIMARY IMMUNODEFICIENCY SYNDROME
     Dosage: 30G EACH 4 WEEKS/1 VIAL IS 10G
     Route: 042
     Dates: start: 20100825, end: 20100825
  3. GAMMAGARD LIQUID [Suspect]
     Route: 065
     Dates: start: 20061025
  4. GAMMAGARD LIQUID [Suspect]
     Route: 065
     Dates: start: 20061025
  5. TIOTROPIUM BROMIDE [Concomitant]

REACTIONS (1)
  - CARDIO-RESPIRATORY ARREST [None]
